FAERS Safety Report 16173421 (Version 2)
Quarter: 2019Q2

REPORT INFORMATION
  Report Type: Spontaneous
  Country: KR (occurrence: KR)
  Receive Date: 20190409
  Receipt Date: 20190502
  Transmission Date: 20190711
  Serious: Yes (Hospitalization, Other)
  Sender: FDA-Public Use
  Company Number: KR-ALVOGEN-2019-ALVOGEN-099175

PATIENT
  Age: 55 Year
  Sex: Male

DRUGS (6)
  1. ROPINIROLE. [Suspect]
     Active Substance: ROPINIROLE
     Indication: COGNITIVE DISORDER
  2. CARBIDOPA/LEVODOPA [Suspect]
     Active Substance: CARBIDOPA\LEVODOPA
     Indication: COGNITIVE DISORDER
     Dosage: 1 DF IS 75/750 MG
  3. METHYLPHENIDATE HYDROCHLORIDE. [Suspect]
     Active Substance: METHYLPHENIDATE HYDROCHLORIDE
     Indication: COGNITIVE DISORDER
  4. BROMOCRIPTINE MESILATE [Suspect]
     Active Substance: BROMOCRIPTINE
     Indication: COGNITIVE DISORDER
  5. VENLAFAXINE [Suspect]
     Active Substance: VENLAFAXINE HYDROCHLORIDE
     Indication: COGNITIVE DISORDER
  6. TIANEPTINE [Suspect]
     Active Substance: TIANEPTINE
     Indication: COGNITIVE DISORDER

REACTIONS (2)
  - Stress cardiomyopathy [Recovered/Resolved]
  - Serotonin syndrome [Recovering/Resolving]
